FAERS Safety Report 6629575-9 (Version None)
Quarter: 2010Q1

REPORT INFORMATION
  Report Type: 
  Country: None (occurrence: None)
  Receive Date: 20100311
  Receipt Date: 20100302
  Transmission Date: 20100710
  Serious: Yes (Hospitalization, Other)
  Sender: FDA-Public Use
  Company Number: US-JNJFOC-20100301162

PATIENT
  Sex: Female
  Weight: 45.36 kg

DRUGS (5)
  1. REMICADE [Suspect]
     Indication: CROHN'S DISEASE
     Route: 042
     Dates: start: 20040601
  2. REMICADE [Suspect]
     Route: 042
     Dates: start: 20040601
  3. PENTASA [Concomitant]
     Indication: CROHN'S DISEASE
  4. PROBIOTIC [Concomitant]
  5. IRON [Concomitant]

REACTIONS (7)
  - ARTHRALGIA [None]
  - CLOSTRIDIAL INFECTION [None]
  - CROHN'S DISEASE [None]
  - DEHYDRATION [None]
  - DRUG SPECIFIC ANTIBODY PRESENT [None]
  - INFECTIOUS MONONUCLEOSIS [None]
  - PYREXIA [None]
